FAERS Safety Report 10784457 (Version 1)
Quarter: 2015Q1

REPORT INFORMATION
  Report Type: Spontaneous
  Country: US (occurrence: None)
  Receive Date: 20150209
  Receipt Date: 20150209
  Transmission Date: 20150721
  Serious: No
  Sender: FDA-Public Use
  Company Number: None

PATIENT
  Age: 9 Year
  Sex: Male
  Weight: 45.36 kg

DRUGS (1)
  1. METHYLPHENIDATE ER [Suspect]
     Active Substance: METHYLPHENIDATE
     Indication: ATTENTION DEFICIT/HYPERACTIVITY DISORDER
     Dosage: 2 PILLS 18/75 =45 ONCE DAILY TAKEN BY MOUTH
     Route: 048
     Dates: start: 20150103, end: 20150206

REACTIONS (8)
  - Abdominal pain upper [None]
  - Vomiting [None]
  - Disturbance in attention [None]
  - Aggression [None]
  - Emotional disorder [None]
  - Anxiety [None]
  - Mood swings [None]
  - Abnormal behaviour [None]

NARRATIVE: CASE EVENT DATE: 20150204
